FAERS Safety Report 14964374 (Version 1)
Quarter: 2018Q2

REPORT INFORMATION
  Report Type: Report from Study
  Country: US (occurrence: US)
  Receive Date: 20180601
  Receipt Date: 20180601
  Transmission Date: 20180711
  Serious: Yes (Other)
  Sender: FDA-Public Use
  Company Number: PHEH2018US021003

PATIENT
  Sex: Female

DRUGS (2)
  1. ENTRESTO [Suspect]
     Active Substance: SACUBITRIL\VALSARTAN
     Indication: PRODUCT USED FOR UNKNOWN INDICATION
     Dosage: 1 DF(SACUBITRIL 24 MG/ VALSARTAN 26 MG) , UNK
     Route: 048
  2. ENTRESTO [Suspect]
     Active Substance: SACUBITRIL\VALSARTAN
     Dosage: 1 DF(SACUBITRIL 49 MG/ VALSARTAN 51 MG), UNK
     Route: 048

REACTIONS (8)
  - Chest discomfort [Unknown]
  - Musculoskeletal chest pain [Unknown]
  - Weight abnormal [Unknown]
  - Vomiting [Unknown]
  - Abdominal distension [Unknown]
  - Cough [Unknown]
  - Choking [Unknown]
  - Rhinorrhoea [Unknown]
